FAERS Safety Report 7288068 (Version 3)
Quarter: 2013Q1

REPORT INFORMATION
  Report Type: Spontaneous
  Country: US (occurrence: US)
  Receive Date: 20100222
  Receipt Date: 20130222
  Transmission Date: 20140127
  Serious: Yes (Other)
  Sender: FDA-Public Use
  Company Number: US-BRISTOL-MYERS SQUIBB COMPANY-14574388

PATIENT
  Age: 67 Year
  Sex: Female
  Weight: 62.58 kg

DRUGS (2)
  1. ORENCIA [Suspect]
     Indication: RHEUMATOID ARTHRITIS
     Dosage: INJECTION?LAST INJECTION ON 27DEC2012
     Route: 058
     Dates: start: 20120928
  2. PREDNISONE [Suspect]

REACTIONS (6)
  - Pelvic fracture [Unknown]
  - Arthropathy [Unknown]
  - Cataract [Unknown]
  - Somnolence [Unknown]
  - Urinary tract infection [Unknown]
  - Drug ineffective [Unknown]
